FAERS Safety Report 25462252 (Version 1)
Quarter: 2025Q2

REPORT INFORMATION
  Report Type: Spontaneous
  Country: KZ (occurrence: None)
  Receive Date: 20250620
  Receipt Date: 20250620
  Transmission Date: 20250717
  Serious: Yes (Hospitalization)
  Sender: FDA-CTU
  Company Number: None

PATIENT
  Age: 27 Year
  Sex: Female
  Weight: 60 kg

DRUGS (2)
  1. ZOLOFT [Suspect]
     Active Substance: SERTRALINE HYDROCHLORIDE
     Indication: Anxiety
  2. OMEGA 3 [Concomitant]
     Active Substance: CAPSAICIN

REACTIONS (12)
  - Feeling abnormal [None]
  - Exploding head syndrome [None]
  - Pyrexia [None]
  - Tremor [None]
  - Loss of consciousness [None]
  - Amnesia [None]
  - Amnesia [None]
  - Burning sensation [None]
  - Libido decreased [None]
  - Anorgasmia [None]
  - Insomnia [None]
  - Hypoaesthesia [None]

NARRATIVE: CASE EVENT DATE: 20240613
